FAERS Safety Report 11753155 (Version 1)
Quarter: 2015Q4

REPORT INFORMATION
  Report Type: Spontaneous
  Country: GB (occurrence: GB)
  Receive Date: 20151119
  Receipt Date: 20151119
  Transmission Date: 20160304
  Serious: Yes (Hospitalization)
  Sender: FDA-Public Use
  Company Number: GB-BAYER-2015-471138

PATIENT
  Sex: Female

DRUGS (1)
  1. BETAFERON [Suspect]
     Active Substance: INTERFERON BETA-1B
     Dosage: 250 MG, UNK
     Route: 058
     Dates: start: 20070817

REACTIONS (3)
  - Product use issue [None]
  - Hospitalisation [None]
  - Malaise [None]
